FAERS Safety Report 18867299 (Version 2)
Quarter: 2021Q1

REPORT INFORMATION
  Report Type: Report from Study
  Country: US (occurrence: US)
  Receive Date: 20210209
  Receipt Date: 20210324
  Transmission Date: 20210420
  Serious: Yes (Other)
  Sender: FDA-Public Use
  Company Number: US-JNJFOC-20210200040

PATIENT
  Age: 52 Year
  Sex: Male
  Weight: 114.86 kg

DRUGS (4)
  1. WELLBUTRIN [Concomitant]
     Active Substance: BUPROPION HYDROCHLORIDE
  2. SPRAVATO [Suspect]
     Active Substance: ESKETAMINE
     Indication: DEPRESSION
     Dosage: 10 TOTAL DOSES
     Dates: start: 20201002, end: 20201211
  3. SPRAVATO [Suspect]
     Active Substance: ESKETAMINE
     Indication: MAJOR DEPRESSION
     Dosage: 2 TOTAL DOSES
     Dates: start: 20200921, end: 20200925
  4. SPRAVATO [Suspect]
     Active Substance: ESKETAMINE
     Dates: start: 20210129, end: 20210129

REACTIONS (5)
  - Poor quality sleep [Unknown]
  - Illusion [Recovered/Resolved]
  - Dissociation [Recovered/Resolved]
  - Product dose omission issue [Recovered/Resolved]
  - Hallucination, visual [Recovered/Resolved]

NARRATIVE: CASE EVENT DATE: 20210129
